FAERS Safety Report 17802868 (Version 1)
Quarter: 2020Q2

REPORT INFORMATION
  Report Type: Spontaneous
  Country: US (occurrence: US)
  Receive Date: 20200519
  Receipt Date: 20200519
  Transmission Date: 20200714
  Serious: Yes (Hospitalization)
  Sender: FDA-Public Use
  Company Number: None

PATIENT
  Age: 80 Year
  Sex: Male
  Weight: 67.7 kg

DRUGS (3)
  1. ASPIRIN. [Concomitant]
     Active Substance: ASPIRIN
  2. LENALIDOMIDE (CC-5013) [Suspect]
     Active Substance: LENALIDOMIDE
     Dates: end: 20200226
  3. COURMADIN [Concomitant]

REACTIONS (14)
  - Oesophageal perforation [None]
  - Oesophageal haemorrhage [None]
  - Fall [None]
  - Hypotension [None]
  - Blood creatinine increased [None]
  - Abdominal pain [None]
  - International normalised ratio increased [None]
  - Pneumomediastinum [None]
  - Nausea [None]
  - Haematemesis [None]
  - Haemoglobin decreased [None]
  - Platelet count decreased [None]
  - Blood urea increased [None]
  - Haematoma [None]

NARRATIVE: CASE EVENT DATE: 20200507
